FAERS Safety Report 7494743-3 (Version None)
Quarter: 2011Q2

REPORT INFORMATION
  Report Type: 
  Country: None (occurrence: None)
  Receive Date: 20110520
  Receipt Date: 20110512
  Transmission Date: 20111010
  Serious: Yes (Hospitalization)
  Sender: FDA-Public Use
  Company Number: IE-ABBOTT-10P-229-0682818-00

PATIENT
  Sex: Male

DRUGS (4)
  1. HUMIRA [Suspect]
  2. MERCAPTOPURINE [Concomitant]
     Indication: PRODUCT USED FOR UNKNOWN INDICATION
  3. HUMIRA [Suspect]
     Indication: CROHN'S DISEASE
     Route: 058
     Dates: start: 20101013, end: 20101013
  4. HUMIRA [Suspect]
     Dates: end: 20110511

REACTIONS (1)
  - FISTULA [None]
